FAERS Safety Report 8813773 (Version 2)
Quarter: 2012Q4

REPORT INFORMATION
  Report Type: 
  Country: US (occurrence: US)
  Receive Date: 20120928
  Receipt Date: 20121012
  Transmission Date: 20130627
  Serious: Yes (Hospitalization)
  Sender: FDA-Public Use
  Company Number: US-BIOGENIDEC-2012BI039917

PATIENT
  Age: 55 Year
  Sex: Female

DRUGS (15)
  1. TYSABRI [Suspect]
     Indication: MULTIPLE SCLEROSIS
     Route: 042
     Dates: start: 20120514
  2. ALPRAZOLAM [Concomitant]
     Route: 048
  3. AMPYRA [Concomitant]
     Indication: GAIT DISTURBANCE
     Route: 048
  4. BISACODYL [Concomitant]
     Route: 048
  5. MECLIZINE [Concomitant]
     Route: 048
  6. SERTRALINE HCL [Concomitant]
     Route: 048
  7. TRAZODONE [Concomitant]
     Route: 048
  8. VYVANSE [Concomitant]
     Route: 048
  9. FOLTX [Concomitant]
     Route: 048
  10. LEVOTHYROXINE SODIUM [Concomitant]
     Dosage: Dose unit:175
     Route: 048
  11. SUMATRIPTAN SUCCINATE [Concomitant]
  12. RESVERATROL [Concomitant]
     Route: 048
  13. VIACTIV MULTI-VITAMIN CHEW [Concomitant]
  14. VITAMIN B-12 [Concomitant]
     Dosage: Dose unit:2500
     Route: 048
  15. ULTRA MEGA [Concomitant]

REACTIONS (6)
  - Cough [Not Recovered/Not Resolved]
  - Lung disorder [Not Recovered/Not Resolved]
  - Nausea [Unknown]
  - Vomiting [Unknown]
  - Pneumonia [Unknown]
  - Blood potassium decreased [Not Recovered/Not Resolved]
